FAERS Safety Report 16461942 (Version 3)
Quarter: 2020Q1

REPORT INFORMATION
  Report Type: Spontaneous
  Country: JP (occurrence: JP)
  Receive Date: 20190621
  Receipt Date: 20200207
  Transmission Date: 20200409
  Serious: Yes (Hospitalization, Other)
  Sender: FDA-Public Use
  Company Number: JP-009507513-1906JPN001979J

PATIENT
  Age: 63 Year
  Sex: Male
  Weight: 61 kg

DRUGS (8)
  1. ALOXI [Suspect]
     Active Substance: PALONOSETRON HYDROCHLORIDE
     Dosage: 0.75 MILLIGRAM, QD
     Route: 042
     Dates: start: 20190419
  2. ALOXI [Suspect]
     Active Substance: PALONOSETRON HYDROCHLORIDE
     Dosage: 0.75 MILLIGRAM, QD
     Route: 041
     Dates: start: 20190517
  3. KEYTRUDA [Suspect]
     Active Substance: PEMBROLIZUMAB
     Indication: NON-SMALL CELL LUNG CANCER
     Dosage: 200 MILLIGRAM, EVERY 4 WEEKS
     Route: 041
     Dates: start: 20190419, end: 20190517
  4. ALIMTA [Suspect]
     Active Substance: PEMETREXED DISODIUM
     Indication: NON-SMALL CELL LUNG CANCER
     Dosage: 860 MILLIGRAM, EVERY 4 WEEKS
     Route: 042
     Dates: start: 20190419, end: 20190517
  5. DEXART [Suspect]
     Active Substance: DEXAMETHASONE SODIUM PHOSPHATE
     Dosage: 13.2 MILLIGRAM, QD
     Route: 042
     Dates: start: 20190419
  6. CARBOPLATIN. [Suspect]
     Active Substance: CARBOPLATIN
     Indication: NON-SMALL CELL LUNG CANCER
     Dosage: 410 MILLIGRAM, EVERY 4 WEEKS
     Route: 042
     Dates: start: 20190517
  7. CISPLATIN. [Suspect]
     Active Substance: CISPLATIN
     Indication: NON-SMALL CELL LUNG CANCER
     Dosage: 129 MILLIGRAM, EVERY 4 WEEKS
     Route: 042
     Dates: start: 20190419
  8. DEXART [Suspect]
     Active Substance: DEXAMETHASONE SODIUM PHOSPHATE
     Dosage: 13.2 MILLIGRAM, QD
     Route: 041
     Dates: start: 20190517

REACTIONS (6)
  - Taste disorder [Recovering/Resolving]
  - Pulmonary embolism [Recovering/Resolving]
  - Off label use [Unknown]
  - Interstitial lung disease [Recovering/Resolving]
  - Pleural effusion [Unknown]
  - Blood creatinine increased [Recovering/Resolving]

NARRATIVE: CASE EVENT DATE: 201904
